FAERS Safety Report 8333939-5 (Version None)
Quarter: 2012Q2

REPORT INFORMATION
  Report Type: 
  Country: None (occurrence: None)
  Receive Date: 20120503
  Receipt Date: 20120425
  Transmission Date: 20120825
  Serious: Yes (Death, Hospitalization)
  Sender: FDA-Public Use
  Company Number: US-ROCHE-804255

PATIENT
  Sex: Female
  Weight: 70 kg

DRUGS (10)
  1. ALDACTONE [Concomitant]
  2. PROZAC [Concomitant]
  3. ACTOS [Concomitant]
  4. AMARYL [Concomitant]
  5. XGEVA [Concomitant]
  6. PRAVACHOL [Concomitant]
  7. XELODA [Suspect]
     Indication: PRODUCT USED FOR UNKNOWN INDICATION
     Route: 048
  8. GLUCOPHAGE [Concomitant]
  9. ZOFRAN [Concomitant]
  10. PEGFILGRASTIM [Concomitant]

REACTIONS (2)
  - DEATH [None]
  - DYSPNOEA [None]
